FAERS Safety Report 20687031 (Version 1)
Quarter: 2022Q2

REPORT INFORMATION
  Report Type: Spontaneous
  Country: US (occurrence: US)
  Receive Date: 20220407
  Receipt Date: 20220407
  Transmission Date: 20220721
  Serious: No
  Sender: FDA-Public Use
  Company Number: US-Blueprint Medicines Corporation-SP-US-2022-000869

PATIENT
  Sex: Male

DRUGS (1)
  1. AYVAKIT [Suspect]
     Active Substance: AVAPRITINIB
     Indication: Gastrointestinal stromal tumour
     Route: 048
     Dates: start: 20211102

REACTIONS (7)
  - Lacrimation increased [Unknown]
  - Taste disorder [Unknown]
  - White blood cell disorder [Recovering/Resolving]
  - Red blood cell abnormality [Recovering/Resolving]
  - Blood bilirubin abnormal [Recovering/Resolving]
  - Ingrowing nail [Unknown]
  - Ocular icterus [Unknown]
